FAERS Safety Report 7427335-2 (Version None)
Quarter: 2011Q2

REPORT INFORMATION
  Report Type: 
  Country: None (occurrence: None)
  Receive Date: 20110420
  Receipt Date: 20110414
  Transmission Date: 20111010
  Serious: Yes (Other)
  Sender: FDA-Public Use
  Company Number: DE-PFIZER INC-2011058795

PATIENT
  Age: 74 Year
  Sex: Male

DRUGS (14)
  1. PANTOZOL [Concomitant]
     Dosage: 40 MG, 1X/DAY
     Dates: start: 20110215
  2. XIPAMIDE [Concomitant]
     Dosage: 40 MG, 1X/DAY
     Dates: start: 20110215
  3. EPOETIN BETA [Concomitant]
     Dosage: 3X400 IU ON M, W, F
     Route: 058
     Dates: start: 20110215
  4. CARMEN [Concomitant]
     Dosage: 20 MG, 1X/DAY
     Dates: start: 20110215
  5. TORSEMIDE [Concomitant]
     Indication: PRODUCT USED FOR UNKNOWN INDICATION
     Dosage: TWICE DAILY 1/2 200 MG TABLET
     Dates: start: 20110215
  6. MIRCERA [Concomitant]
     Dosage: 120 UG, EVERY 3 - 4 WEEKS
     Dates: start: 20110215
  7. CALCITRIOL [Concomitant]
     Dosage: 0.25 UG, ALTERNATE DAY
     Dates: start: 20110215
  8. ATACAND [Concomitant]
     Dosage: 8 MG, 1X/DAY
     Dates: start: 20110215
  9. SIMVASTATIN [Concomitant]
     Dosage: 20 MG, 1X/DAY
     Dates: start: 20110215
  10. RENAGEL [Concomitant]
     Indication: PRODUCT USED FOR UNKNOWN INDICATION
     Dosage: THRICE DAILY 2 X 800MG
     Dates: start: 20110215
  11. MARCUMAR [Suspect]
     Dosage: UNK
     Dates: start: 20110215
  12. BISOPROLOL [Concomitant]
     Dosage: 5 MG, 1X/DAY
     Dates: start: 20110215
  13. MOXONIDINE [Concomitant]
     Dosage: 0.3 MG, 1X/DAY
     Dates: start: 20110215
  14. REVATIO [Suspect]
     Dosage: 20 MG, 2X/DAY
     Dates: start: 20110215

REACTIONS (4)
  - RENAL HAEMORRHAGE [None]
  - INTESTINAL HAEMORRHAGE [None]
  - GASTRIC HAEMORRHAGE [None]
  - URETERIC HAEMORRHAGE [None]
